FAERS Safety Report 19920804 (Version 1)
Quarter: 2021Q4

REPORT INFORMATION
  Report Type: Spontaneous
  Country: US (occurrence: US)
  Receive Date: 20211005
  Receipt Date: 20211005
  Transmission Date: 20220303
  Serious: No
  Sender: FDA-Public Use
  Company Number: US-ADAMAS PHARMA, LLC-2020ADA02542

PATIENT
  Age: 78 Year
  Sex: Female

DRUGS (2)
  1. GOCOVRI [Suspect]
     Active Substance: AMANTADINE
     Indication: Dyskinesia
     Dosage: 274 MG, 1X/DAY AT BEDTIME
     Route: 048
     Dates: start: 20191001, end: 20201023
  2. CARBIDOPA\LEVODOPA [Concomitant]
     Active Substance: CARBIDOPA\LEVODOPA

REACTIONS (3)
  - Gait disturbance [Not Recovered/Not Resolved]
  - Product substitution [Not Recovered/Not Resolved]
  - Product supply issue [Not Recovered/Not Resolved]

NARRATIVE: CASE EVENT DATE: 20200101
